FAERS Safety Report 25793214 (Version 1)
Quarter: 2025Q3

REPORT INFORMATION
  Report Type: Spontaneous
  Country: EU (occurrence: EU)
  Receive Date: 20250911
  Receipt Date: 20250911
  Transmission Date: 20251021
  Serious: Yes (Hospitalization)
  Sender: UCB
  Company Number: None

PATIENT
  Age: 57 Year
  Sex: Male
  Weight: 97 kg

DRUGS (1)
  1. KEPPRA [Suspect]
     Active Substance: LEVETIRACETAM
     Indication: Generalised tonic-clonic seizure
     Route: 048
     Dates: start: 20250722

REACTIONS (2)
  - Hallucination [Recovering/Resolving]
  - Brief psychotic disorder with marked stressors [Recovering/Resolving]

NARRATIVE: CASE EVENT DATE: 20250727
